FAERS Safety Report 7969858-3 (Version None)
Quarter: 2011Q4

REPORT INFORMATION
  Report Type: 
  Country: None (occurrence: None)
  Receive Date: 20111212
  Receipt Date: 20111201
  Transmission Date: 20120403
  Serious: Yes (Hospitalization)
  Sender: FDA-Public Use
  Company Number: FR-BAYER-2011-101607

PATIENT
  Age: 49 Year
  Sex: Female

DRUGS (2)
  1. MIRENA [Suspect]
     Indication: CONTRACEPTION
     Dosage: UNK
     Route: 015
     Dates: end: 20111018
  2. AMOXICILLIN AND CLAVULANATE POTASSIUM [Suspect]
     Indication: OROPHARYNGEAL PAIN
     Dosage: UNK
     Route: 048
     Dates: start: 20110914, end: 20110919

REACTIONS (6)
  - RASH [None]
  - OROPHARYNGEAL PAIN [None]
  - RAYNAUD'S PHENOMENON [None]
  - ERYTHEMA NODOSUM [None]
  - OEDEMA PERIPHERAL [None]
  - ARTHRALGIA [None]
